FAERS Safety Report 22539065 (Version 2)
Quarter: 2023Q2

REPORT INFORMATION
  Report Type: Spontaneous
  Country: US (occurrence: US)
  Receive Date: 20230609
  Receipt Date: 20230627
  Transmission Date: 20230722
  Serious: Yes (Death, Other)
  Sender: FDA-Public Use
  Company Number: US-SA-SAC20230608000483

PATIENT
  Age: 67 Year
  Sex: Female
  Weight: 81.64 kg

DRUGS (1)
  1. DUPIXENT [Suspect]
     Active Substance: DUPILUMAB
     Indication: Neurodermatitis
     Dosage: UNK
     Route: 065
     Dates: end: 2023

REACTIONS (1)
  - Cerebrovascular accident [Fatal]

NARRATIVE: CASE EVENT DATE: 20230603
